FAERS Safety Report 24420407 (Version 2)
Quarter: 2024Q4

REPORT INFORMATION
  Report Type: Spontaneous
  Country: CN (occurrence: CN)
  Receive Date: 20241010
  Receipt Date: 20241024
  Transmission Date: 20250115
  Serious: Yes (Other)
  Sender: NOVO NORDISK
  Company Number: CN-NOVOPROD-1293350

PATIENT
  Age: 10 Year
  Sex: Male
  Weight: 37 kg

DRUGS (2)
  1. NORDITROPIN [Suspect]
     Active Substance: SOMATROPIN
     Indication: Short stature
     Dosage: 0.15 IU/KG, QD
     Route: 058
  2. TRIPTORELIN [Concomitant]
     Active Substance: TRIPTORELIN
     Indication: Short stature
     Dosage: 3.75 G, QW
     Route: 030

REACTIONS (3)
  - Epilepsy [Recovered/Resolved]
  - Tooth injury [Unknown]
  - Fall [Recovered/Resolved]
